FAERS Safety Report 4850159-7 (Version None)
Quarter: 2005Q4

REPORT INFORMATION
  Report Type: 
  Country: None (occurrence: None)
  Receive Date: 20051123
  Receipt Date: 20050705
  Transmission Date: 20060501
  Serious: Yes (Hospitalization)
  Sender: FDA-Public Use
  Company Number: 2005078348

PATIENT
  Age: 61 Year
  Sex: Male

DRUGS (15)
  1. LIPITOR [Suspect]
     Indication: DYSLIPIDAEMIA
     Dosage: 40 MG (40 MG, 1 IN 1 D), ORAL
     Route: 048
     Dates: start: 20050101, end: 20050129
  2. LIPITOR [Suspect]
     Indication: MYOCARDIAL INFARCTION
     Dosage: 40 MG (40 MG, 1 IN 1 D), ORAL
     Route: 048
     Dates: start: 20050101, end: 20050129
  3. NIASPAN [Suspect]
     Indication: ILL-DEFINED DISORDER
     Dosage: 500 MG (500 MG, 1 IN 1 D), ORAL
     Route: 048
     Dates: start: 20050208, end: 20050404
  4. PROTONIX [Concomitant]
  5. PROSCAR [Concomitant]
  6. ALL OTHER THERAPEUTIC PRODUCTS [Concomitant]
  7. KLOR-CON [Concomitant]
  8. PLAVIX [Concomitant]
  9. AVAPRO [Concomitant]
  10. FUROSEMIDE [Concomitant]
  11. COREG [Concomitant]
  12. ECOTRIN (ACETYLSALICYLIC ACID) [Concomitant]
  13. ALLOPURINOL [Concomitant]
  14. FISH OIL [Concomitant]
  15. KEFLEX [Concomitant]

REACTIONS (4)
  - BLOOD CREATINE PHOSPHOKINASE INCREASED [None]
  - DIARRHOEA [None]
  - FATIGUE [None]
  - MYALGIA [None]
